FAERS Safety Report 11923688 (Version 1)
Quarter: 2016Q1

REPORT INFORMATION
  Report Type: Spontaneous
  Country: US (occurrence: US)
  Receive Date: 20160118
  Receipt Date: 20160118
  Transmission Date: 20160526
  Serious: No
  Sender: FDA-Public Use
  Company Number: US-PFIZER INC-2015390288

PATIENT
  Age: 77 Year
  Sex: Female
  Weight: 61.22 kg

DRUGS (3)
  1. IBRANCE [Suspect]
     Active Substance: PALBOCICLIB
     Indication: BREAST CANCER METASTATIC
     Dosage: 125 MG, CYCLIC (JUST ONE A DAY BY MOUTH FOR 21DAY AND 7 DAYS OFF)
     Route: 048
     Dates: start: 20151201, end: 20151215
  2. LETROZOLE. [Concomitant]
     Active Substance: LETROZOLE
     Indication: BONE CANCER
     Dosage: 2.5 MG, UNK
  3. LETROZOLE. [Concomitant]
     Active Substance: LETROZOLE
     Dosage: UNK

REACTIONS (2)
  - White blood cell count decreased [Not Recovered/Not Resolved]
  - Platelet count decreased [Not Recovered/Not Resolved]

NARRATIVE: CASE EVENT DATE: 20151215
